FAERS Safety Report 9835147 (Version 1)
Quarter: 2014Q1

REPORT INFORMATION
  Report Type: Spontaneous
  Country: US (occurrence: US)
  Receive Date: 20140122
  Receipt Date: 20140122
  Transmission Date: 20141002
  Serious: No
  Sender: FDA-Public Use
  Company Number: US-BRISTOL-MYERS SQUIBB COMPANY-19830801

PATIENT
  Age: 68 Year
  Sex: Male

DRUGS (8)
  1. ELIQUIS [Suspect]
     Dates: start: 20130905, end: 20130924
  2. WARFARIN [Concomitant]
     Dosage: JUNE 2009 TO JULY 2012, AGAIN STARTED ON 24 SEP2013?11NOV2013:2.5MG QD
     Dates: start: 200906
  3. AMIODARONE [Concomitant]
     Dates: start: 201305
  4. LIPITOR [Concomitant]
  5. COREG [Concomitant]
  6. FRUSEMIDE [Concomitant]
  7. IMDUR [Concomitant]
  8. ZAROXOLYN [Concomitant]

REACTIONS (1)
  - Liver function test abnormal [Unknown]
